FAERS Safety Report 20318389 (Version 7)
Quarter: 2023Q4

REPORT INFORMATION
  Report Type: Report from Study
  Country: AR (occurrence: AR)
  Receive Date: 20220110
  Receipt Date: 20231124
  Transmission Date: 20240110
  Serious: Yes (Other)
  Sender: FDA-Public Use
  Company Number: AR-NOVARTISPH-PHHY2018AR055686

PATIENT
  Age: 71 Year
  Sex: Male

DRUGS (2)
  1. COSENTYX [Suspect]
     Active Substance: SECUKINUMAB
     Indication: Psoriasis
     Dosage: 300 MG
     Route: 058
     Dates: start: 201610
  2. COSENTYX [Suspect]
     Active Substance: SECUKINUMAB
     Indication: Psoriatic arthropathy
     Dosage: 300 MG, QMO
     Route: 058
     Dates: start: 20161021

REACTIONS (16)
  - Diabetes mellitus [Unknown]
  - Psoriatic arthropathy [Unknown]
  - Condition aggravated [Unknown]
  - Psoriasis [Unknown]
  - Skin lesion [Unknown]
  - Skin exfoliation [Not Recovered/Not Resolved]
  - Pruritus [Not Recovered/Not Resolved]
  - Arthralgia [Not Recovered/Not Resolved]
  - Bone pain [Unknown]
  - Musculoskeletal discomfort [Unknown]
  - General physical health deterioration [Unknown]
  - Hiccups [Unknown]
  - Illness [Unknown]
  - Memory impairment [Unknown]
  - Gait disturbance [Unknown]
  - Movement disorder [Unknown]

NARRATIVE: CASE EVENT DATE: 20220104
